FAERS Safety Report 13613485 (Version 6)
Quarter: 2018Q1

REPORT INFORMATION
  Report Type: Report from Study
  Country: AU (occurrence: AU)
  Receive Date: 20170605
  Receipt Date: 20180109
  Transmission Date: 20180508
  Serious: Yes (Hospitalization, Disabling, Other)
  Sender: FDA-Public Use
  Company Number: AU-GILEAD-2014-0096044

PATIENT
  Age: 55 Year
  Sex: Female
  Weight: 87.8 kg

DRUGS (26)
  1. RIBAVIRIN. [Suspect]
     Active Substance: RIBAVIRIN
     Indication: HEPATITIS C
     Dosage: 1200 MG, QD
     Route: 048
     Dates: start: 20140123, end: 20140420
  2. RIBAVIRIN. [Suspect]
     Active Substance: RIBAVIRIN
     Dosage: 1200 MG, QD
     Route: 048
     Dates: start: 20140605, end: 20140608
  3. ESCITALOPRAM [Concomitant]
     Active Substance: ESCITALOPRAM OXALATE
     Indication: DEPRESSION
     Route: 048
     Dates: start: 20131028
  4. RIBAVIRIN. [Suspect]
     Active Substance: RIBAVIRIN
     Dosage: 600 MG, QD
     Route: 048
     Dates: start: 20140604, end: 20140604
  5. PANADEINE                          /00116401/ [Concomitant]
     Active Substance: ACETAMINOPHEN\CODEINE PHOSPHATE
     Indication: HEADACHE
     Dosage: UNK
     Route: 048
     Dates: start: 20140129
  6. SELENIUM [Concomitant]
     Active Substance: SELENIUM
     Indication: PRODUCT USED FOR UNKNOWN INDICATION
     Dosage: UNK UNKNOWN, UNK
     Route: 065
  7. RIBAVIRIN. [Suspect]
     Active Substance: RIBAVIRIN
     Dosage: 1200 MG, QD
     Route: 048
     Dates: start: 20140422, end: 20140603
  8. ZINC                               /00156502/ [Concomitant]
     Indication: PRODUCT USED FOR UNKNOWN INDICATION
     Dosage: UNK UNKNOWN, UNK
     Route: 065
  9. RIBAVIRIN. [Suspect]
     Active Substance: RIBAVIRIN
     Dosage: 600 MG, QD
     Route: 048
     Dates: start: 20140609, end: 20140609
  10. ESCITALOPRAM [Concomitant]
     Active Substance: ESCITALOPRAM OXALATE
     Indication: ANXIETY
  11. MULTIVITAMIN                       /00097801/ [Concomitant]
     Active Substance: VITAMINS
     Indication: PRODUCT USED FOR UNKNOWN INDICATION
     Dosage: UNK UNKNOWN, UNK
     Route: 065
  12. ST. JOHN^S WORT                    /01166801/ [Concomitant]
     Active Substance: ST. JOHN^S WORT
     Indication: PRODUCT USED FOR UNKNOWN INDICATION
     Dosage: UNK UNKNOWN, UNK
     Route: 065
  13. RIBAVIRIN. [Suspect]
     Active Substance: RIBAVIRIN
     Dosage: 1200 MG, QD
     Route: 048
     Dates: start: 20140610, end: 20140709
  14. RIBAVIRIN. [Suspect]
     Active Substance: RIBAVIRIN
     Dosage: 600 MG, QD
     Route: 048
     Dates: start: 20140710, end: 20140710
  15. L-LYSINE                           /00919901/ [Concomitant]
     Indication: ANTIVIRAL PROPHYLAXIS
     Route: 048
     Dates: start: 2003
  16. NUROFEN                            /00109201/ [Concomitant]
     Active Substance: IBUPROFEN
     Indication: HERPES ZOSTER
  17. VITAMIN D                          /00107901/ [Concomitant]
     Active Substance: ERGOCALCIFEROL
     Indication: PRODUCT USED FOR UNKNOWN INDICATION
     Dosage: UNK UNKNOWN, UNK
     Route: 065
  18. VITAMIN B3 [Concomitant]
     Active Substance: NIACIN
     Indication: PRODUCT USED FOR UNKNOWN INDICATION
     Dosage: UNK UNKNOWN, UNK
     Route: 065
  19. NUROFEN                            /00109201/ [Concomitant]
     Active Substance: IBUPROFEN
     Indication: HEADACHE
     Dosage: UNK UNKNOWN, UNK
     Route: 048
     Dates: start: 20140129
  20. COENZYME Q10 [Concomitant]
     Active Substance: UBIDECARENONE
     Indication: PRODUCT USED FOR UNKNOWN INDICATION
     Dosage: UNK UNKNOWN, UNK
     Route: 065
  21. SOFOSBUVIR [Suspect]
     Active Substance: SOFOSBUVIR
     Indication: HEPATITIS C
     Dosage: 400 MG, QD
     Route: 048
     Dates: start: 20140123, end: 20140420
  22. SOFOSBUVIR [Suspect]
     Active Substance: SOFOSBUVIR
     Dosage: 400 MG, QD
     Route: 048
     Dates: start: 20140422, end: 20140710
  23. MAGNESIUM [Concomitant]
     Active Substance: MAGNESIUM
     Indication: PRODUCT USED FOR UNKNOWN INDICATION
     Dosage: UNK UNKNOWN, UNK
     Route: 065
  24. WITCH HAZEL                        /01376402/ [Concomitant]
     Indication: HERPES ZOSTER
     Dosage: UNK UNKNOWN, UNK
     Route: 061
     Dates: start: 20140202
  25. CALCIUM [Concomitant]
     Active Substance: CALCIUM
     Indication: PRODUCT USED FOR UNKNOWN INDICATION
     Dosage: UNK UNKNOWN, UNK
     Route: 065
  26. L-CARNITINE                        /00878601/ [Concomitant]
     Active Substance: LEVOCARNITINE
     Indication: PRODUCT USED FOR UNKNOWN INDICATION
     Dosage: UNK UNKNOWN, UNK
     Route: 065

REACTIONS (5)
  - Myalgia [Not Recovered/Not Resolved]
  - Musculoskeletal chest pain [Recovered/Resolved]
  - Fatigue [Not Recovered/Not Resolved]
  - Impaired work ability [Not Recovered/Not Resolved]
  - Arthralgia [Not Recovered/Not Resolved]

NARRATIVE: CASE EVENT DATE: 2014
